FAERS Safety Report 6346138-3 (Version None)
Quarter: 2009Q3

REPORT INFORMATION
  Report Type: 
  Country: None (occurrence: None)
  Receive Date: 20090821
  Receipt Date: 20090713
  Transmission Date: 20100115
  Serious: No
  Sender: FDA-Public Use
  Company Number: 8047152

PATIENT
  Age: 25 Year
  Sex: Female
  Weight: 64.5 kg

DRUGS (5)
  1. CIMZIA [Suspect]
     Indication: CROHN'S DISEASE
     Dosage: 400 MG SC
     Route: 058
     Dates: start: 20081201
  2. XIFAXAN [Concomitant]
  3. VITAMIN B-12 [Concomitant]
  4. IRON W/VITAMIN C [Concomitant]
  5. AMBIEN [Concomitant]

REACTIONS (4)
  - ABDOMINAL PAIN [None]
  - BACK PAIN [None]
  - FAECAL INCONTINENCE [None]
  - FATIGUE [None]
